FAERS Safety Report 23504412 (Version 1)
Quarter: 2024Q1

REPORT INFORMATION
  Report Type: Spontaneous
  Country: US (occurrence: US)
  Receive Date: 20240209
  Receipt Date: 20240209
  Transmission Date: 20240410
  Serious: No
  Sender: FDA-Public Use
  Company Number: US-IGSA-BIG0022479

PATIENT
  Age: 77 Year
  Sex: Female
  Weight: 61 kg

DRUGS (5)
  1. PROLASTIN-C LIQUID [Suspect]
     Active Substance: .ALPHA.1-PROTEINASE INHIBITOR HUMAN
     Indication: Alpha-1 antitrypsin deficiency
     Dosage: 3660 MILLIGRAM, Q.WK.
     Route: 042
     Dates: start: 20180810
  2. ATENOLOL [Concomitant]
     Active Substance: ATENOLOL
  3. FEMRING [Concomitant]
     Active Substance: ESTRADIOL ACETATE
  4. FLECAINIDE [Concomitant]
     Active Substance: FLECAINIDE
  5. PROVERA [MEDROXYPROGESTERONE] [Concomitant]

REACTIONS (1)
  - Chills [Recovering/Resolving]

NARRATIVE: CASE EVENT DATE: 20230301
